FAERS Safety Report 13278057 (Version 1)
Quarter: 2017Q1

REPORT INFORMATION
  Report Type: Spontaneous
  Country: US (occurrence: US)
  Receive Date: 20170228
  Receipt Date: 20170228
  Transmission Date: 20170428
  Serious: No
  Sender: FDA-Public Use
  Company Number: US-PFIZER INC-2017081870

PATIENT
  Age: 55 Year
  Sex: Female

DRUGS (1)
  1. BOSULIF [Suspect]
     Active Substance: BOSUTINIB MONOHYDRATE
     Dosage: 400 MG, DAILY [100MG, 4 TABLETS BY MOUTH DAILY]
     Route: 048
     Dates: start: 20160927, end: 20170121

REACTIONS (1)
  - Neoplasm progression [Unknown]
